FAERS Safety Report 5332243-7 (Version None)
Quarter: 2007Q1

REPORT INFORMATION
  Report Type: 
  Country: None (occurrence: None)
  Receive Date: 20070306
  Receipt Date: 20060511
  Transmission Date: 20070707
  Serious: Yes (Other)
  Sender: FDA-Public Use
  Company Number: A03200603011

PATIENT
  Age: 59 Year
  Sex: Male
  Weight: 92.97 kg

DRUGS (5)
  1. PLAVIX [Suspect]
     Indication: STENT PLACEMENT
     Dosage: 75 MG QD - ORAL
     Route: 048
     Dates: start: 20040301
  2. ACETYLSALICYLIC ACID SRT [Concomitant]
  3. ATORVASTATIN [Concomitant]
  4. AMLODIPINE BESYLATE [Concomitant]
  5. ISOSORBIDE MONONITRATE [Concomitant]

REACTIONS (2)
  - CHEST PAIN [None]
  - CORONARY ARTERY OCCLUSION [None]
